FAERS Safety Report 20344980 (Version 2)
Quarter: 2022Q1

REPORT INFORMATION
  Report Type: Spontaneous
  Country: PL (occurrence: PL)
  Receive Date: 20220118
  Receipt Date: 20220124
  Transmission Date: 20220423
  Serious: Yes (Hospitalization, Other)
  Sender: FDA-Public Use
  Company Number: PL-GEN-2021-1504

PATIENT
  Age: 15 Year
  Sex: Male

DRUGS (5)
  1. OLANZAPINE [Suspect]
     Active Substance: OLANZAPINE
     Indication: Schizophrenia
     Dosage: UNK UNK, UNKNOWN
     Route: 065
  2. LAMOTRIGINE [Suspect]
     Active Substance: LAMOTRIGINE
     Indication: Schizophrenia
     Dosage: UNK, UNKNOWN
     Route: 065
  3. ARIPIPRAZOLE [Suspect]
     Active Substance: ARIPIPRAZOLE
     Indication: Schizophrenia
     Route: 065
  4. COMPOUND SODIUM VALPROATE AND VALPROIC ACID [Concomitant]
     Indication: Schizophrenia
     Route: 065
  5. AMISULPRIDE [Concomitant]
     Active Substance: AMISULPRIDE
     Indication: Schizophrenia
     Dosage: UNK, UNKNOWN
     Route: 065

REACTIONS (8)
  - Thinking abnormal [Recovering/Resolving]
  - Hallucination, auditory [Recovering/Resolving]
  - Negative symptoms in schizophrenia [Recovering/Resolving]
  - Catatonia [Recovering/Resolving]
  - White blood cell disorder [Recovering/Resolving]
  - Stupor [Recovering/Resolving]
  - Blood cholesterol increased [Recovering/Resolving]
  - Drug ineffective [Recovering/Resolving]
